FAERS Safety Report 5618706-5 (Version None)
Quarter: 2008Q1

REPORT INFORMATION
  Report Type: 
  Country: None (occurrence: None)
  Receive Date: 20080205
  Receipt Date: 20080205
  Transmission Date: 20080703
  Serious: Yes (Other)
  Sender: FDA-Public Use
  Company Number: None

PATIENT
  Age: 37 Year
  Sex: Female
  Weight: 50.3493 kg

DRUGS (1)
  1. MIRENA [Suspect]
     Indication: CONTRACEPTION
     Dates: start: 20061215, end: 20070917

REACTIONS (13)
  - ACTIVITIES OF DAILY LIVING IMPAIRED [None]
  - ARTHRALGIA [None]
  - DYSSTASIA [None]
  - DYSURIA [None]
  - FATIGUE [None]
  - GAIT DISTURBANCE [None]
  - JOINT STIFFNESS [None]
  - MUSCULOSKELETAL STIFFNESS [None]
  - MYALGIA [None]
  - PAIN [None]
  - URINARY TRACT INFECTION [None]
  - URINE ABNORMALITY [None]
  - URINE ODOUR ABNORMAL [None]
